FAERS Safety Report 7918836-9 (Version None)
Quarter: 2011Q4

REPORT INFORMATION
  Report Type: 
  Country: None (occurrence: None)
  Receive Date: 20111116
  Receipt Date: 20111107
  Transmission Date: 20120403
  Serious: Yes (Hospitalization)
  Sender: FDA-Public Use
  Company Number: PHHO2011DE18070

PATIENT
  Sex: Male
  Weight: 82 kg

DRUGS (5)
  1. EVEROLIMUS [Suspect]
     Indication: RENAL TRANSPLANT
     Dosage: UNK
  2. MYFORTIC [Suspect]
     Indication: RENAL TRANSPLANT
     Dosage: UNK
  3. METHYLPREDNISOLONE [Suspect]
  4. CYCLOSPORINE [Suspect]
     Indication: RENAL TRANSPLANT
     Dosage: 75 MG, BID
     Route: 048
     Dates: start: 20070908, end: 20080511
  5. PROGRAF [Suspect]

REACTIONS (1)
  - THYROID CANCER [None]
